FAERS Safety Report 14646734 (Version 2)
Quarter: 2018Q1

REPORT INFORMATION
  Report Type: Report from Study
  Country: BR (occurrence: BR)
  Receive Date: 20180316
  Receipt Date: 20180329
  Transmission Date: 20180509
  Serious: Yes (Other)
  Sender: FDA-Public Use
  Company Number: PHHY2018BR042133

PATIENT
  Sex: Female
  Weight: 43 kg

DRUGS (4)
  1. SUPRA D [Concomitant]
     Indication: VITAMIN D DECREASED
     Dosage: 10 DRP, QD (START 5 YEAR AGO)
     Route: 048
  2. ACLASTA [Suspect]
     Active Substance: ZOLEDRONIC ACID
     Indication: OSTEOPOROSIS
     Dosage: 1 DF, Q12MO
     Route: 042
  3. CALCIUM [Concomitant]
     Active Substance: CALCIUM
     Indication: OSTEOPOROSIS
     Dosage: 2 DF, QD
     Route: 048
  4. PROLIA [Concomitant]
     Active Substance: DENOSUMAB
     Indication: OSTEOPOROSIS
     Dosage: 1 DF, EVERY 6 MONTHS
     Route: 030
     Dates: start: 2017

REACTIONS (13)
  - Drug ineffective [Unknown]
  - Arthralgia [Recovered/Resolved]
  - Pain [Recovering/Resolving]
  - Gait inability [Recovering/Resolving]
  - Fear [Unknown]
  - Feeling abnormal [Unknown]
  - Body height decreased [Recovering/Resolving]
  - Bone pain [Recovered/Resolved]
  - Back pain [Recovered/Resolved]
  - Bone pain [Recovering/Resolving]
  - Gait disturbance [Recovered/Resolved]
  - Tooth infection [Unknown]
  - Neck pain [Recovered/Resolved]
